FAERS Safety Report 24458283 (Version 1)
Quarter: 2024Q4

REPORT INFORMATION
  Report Type: Report from Study
  Country: CA (occurrence: CA)
  Receive Date: 20241018
  Receipt Date: 20241018
  Transmission Date: 20250115
  Serious: No
  Sender: ROCHE
  Company Number: CA-ROCHE-3516211

PATIENT
  Sex: Female

DRUGS (11)
  1. RITUXAN [Suspect]
     Active Substance: RITUXIMAB
     Indication: Lupus nephritis
     Dosage: DAY 1, DAY 15
     Route: 042
     Dates: start: 20200729
  2. AMLODIPINE [Concomitant]
     Active Substance: AMLODIPINE BESYLATE
  3. AVAPRO [Concomitant]
     Active Substance: IRBESARTAN
  4. BENADRYL [Concomitant]
     Active Substance: DIPHENHYDRAMINE HYDROCHLORIDE
     Route: 048
  5. EPREX [Concomitant]
     Active Substance: ERYTHROPOIETIN
  6. IRBESARTAN [Concomitant]
     Active Substance: IRBESARTAN
  7. IRON [Concomitant]
     Active Substance: IRON
  8. LASIX [Concomitant]
     Active Substance: FUROSEMIDE
  9. PLAQUENIL [Concomitant]
     Active Substance: HYDROXYCHLOROQUINE SULFATE
     Route: 048
     Dates: start: 20140116
  10. SOLU-MEDROL [Concomitant]
     Active Substance: METHYLPREDNISOLONE SODIUM SUCCINATE
     Route: 042
  11. TYLENOL [Concomitant]
     Active Substance: ACETAMINOPHEN
     Route: 048

REACTIONS (1)
  - Bone pain [Unknown]
